APPROVED DRUG PRODUCT: NICORETTE (MINT)
Active Ingredient: NICOTINE POLACRILEX
Strength: EQ 2MG BASE
Dosage Form/Route: GUM, CHEWING;BUCCAL
Application: N018612 | Product #003
Applicant: HALEON US HOLDINGS LLC
Approved: Dec 23, 1998 | RLD: Yes | RS: No | Type: OTC